FAERS Safety Report 6120312-3 (Version None)
Quarter: 2009Q1

REPORT INFORMATION
  Report Type: 
  Country: None (occurrence: None)
  Receive Date: 20090312
  Receipt Date: 20090302
  Transmission Date: 20090719
  Serious: Yes (Other)
  Sender: FDA-Public Use
  Company Number: CHNY2009JP01186

PATIENT
  Sex: Male

DRUGS (1)
  1. NICOTINE [Suspect]
     Indication: SMOKING CESSATION THERAPY
     Dosage: TRANSDERMAL
     Route: 062
     Dates: start: 20080528, end: 20080820

REACTIONS (6)
  - DANDRUFF [None]
  - NERVOUSNESS [None]
  - PAROSMIA [None]
  - PERIPHERAL NERVE LESION [None]
  - SENSITIVITY OF TEETH [None]
  - TINNITUS [None]
